FAERS Safety Report 16301416 (Version 2)
Quarter: 2019Q3

REPORT INFORMATION
  Report Type: Spontaneous
  Country: CA (occurrence: CA)
  Receive Date: 20190510
  Receipt Date: 20190916
  Transmission Date: 20191004
  Serious: Yes (Hospitalization, Other)
  Sender: FDA-Public Use
  Company Number: CA-BAXTER-2019BAX009226

PATIENT
  Age: 61 Year
  Sex: Female
  Weight: 85 kg

DRUGS (51)
  1. PROCYTOX (CYCLOPHOSPHAMIDE) 2000MG/VIAL [Suspect]
     Active Substance: CYCLOPHOSPHAMIDE
     Indication: BREAST CANCER
     Route: 042
  2. PROCYTOX (CYCLOPHOSPHAMIDE) 2000MG/VIAL [Suspect]
     Active Substance: CYCLOPHOSPHAMIDE
     Route: 042
  3. DOXORUBICIN HYDROCHLORIDE. [Suspect]
     Active Substance: DOXORUBICIN HYDROCHLORIDE
     Indication: BREAST CANCER
     Route: 042
  4. ONDANSETRON [Suspect]
     Active Substance: ONDANSETRON
     Route: 048
  5. PEGFILGRASTIM [Suspect]
     Active Substance: PEGFILGRASTIM
     Route: 058
  6. PEGFILGRASTIM [Suspect]
     Active Substance: PEGFILGRASTIM
     Route: 058
  7. PEGFILGRASTIM [Suspect]
     Active Substance: PEGFILGRASTIM
     Route: 058
  8. CITALOPRAM [Concomitant]
     Active Substance: CITALOPRAM HYDROBROMIDE
     Indication: PRODUCT USED FOR UNKNOWN INDICATION
     Route: 048
  9. PROCYTOX (CYCLOPHOSPHAMIDE) 2000MG/VIAL [Suspect]
     Active Substance: CYCLOPHOSPHAMIDE
     Route: 042
  10. APREPITANT. [Suspect]
     Active Substance: APREPITANT
     Indication: SUPPORTIVE CARE
     Route: 048
  11. APREPITANT. [Suspect]
     Active Substance: APREPITANT
     Route: 048
  12. TRASTUZUMAB. [Suspect]
     Active Substance: TRASTUZUMAB
     Indication: BREAST CANCER
     Route: 065
  13. HYDROMORPHONE [Concomitant]
     Active Substance: HYDROMORPHONE
     Indication: PRODUCT USED FOR UNKNOWN INDICATION
     Route: 048
  14. APREPITANT. [Suspect]
     Active Substance: APREPITANT
     Route: 048
  15. DOXORUBICIN HYDROCHLORIDE. [Suspect]
     Active Substance: DOXORUBICIN HYDROCHLORIDE
     Route: 042
  16. PEGFILGRASTIM [Suspect]
     Active Substance: PEGFILGRASTIM
     Route: 058
  17. PREDNISONE. [Suspect]
     Active Substance: PREDNISONE
     Route: 065
  18. NAPROXEN. [Concomitant]
     Active Substance: NAPROXEN
     Indication: PRODUCT USED FOR UNKNOWN INDICATION
     Route: 048
  19. PROCYTOX (CYCLOPHOSPHAMIDE) 2000MG/VIAL [Suspect]
     Active Substance: CYCLOPHOSPHAMIDE
     Route: 042
  20. APREPITANT. [Suspect]
     Active Substance: APREPITANT
     Route: 048
  21. DOXORUBICIN HYDROCHLORIDE. [Suspect]
     Active Substance: DOXORUBICIN HYDROCHLORIDE
     Route: 042
  22. DOXORUBICIN HYDROCHLORIDE. [Suspect]
     Active Substance: DOXORUBICIN HYDROCHLORIDE
     Route: 042
  23. DOXORUBICIN HYDROCHLORIDE. [Suspect]
     Active Substance: DOXORUBICIN HYDROCHLORIDE
     Route: 042
  24. DEXAMETHASONE. [Concomitant]
     Active Substance: DEXAMETHASONE
     Indication: SUPPORTIVE CARE
     Route: 048
  25. DEXAMETHASONE. [Concomitant]
     Active Substance: DEXAMETHASONE
     Route: 048
  26. GABAPENTIN. [Concomitant]
     Active Substance: GABAPENTIN
     Indication: PRODUCT USED FOR UNKNOWN INDICATION
     Route: 048
  27. APREPITANT. [Suspect]
     Active Substance: APREPITANT
     Route: 048
  28. APREPITANT. [Suspect]
     Active Substance: APREPITANT
     Route: 048
  29. ONDANSETRON [Suspect]
     Active Substance: ONDANSETRON
     Route: 048
  30. ONDANSETRON [Suspect]
     Active Substance: ONDANSETRON
     Route: 048
  31. ONDANSETRON [Suspect]
     Active Substance: ONDANSETRON
     Route: 048
  32. PANTOPRAZOLE [Suspect]
     Active Substance: PANTOPRAZOLE
     Indication: PRODUCT USED FOR UNKNOWN INDICATION
     Dosage: DOSAGE FORM: NOT SPECIFIED
     Route: 048
  33. METOCLOPRAMIDE. [Suspect]
     Active Substance: METOCLOPRAMIDE
     Indication: PRODUCT USED FOR UNKNOWN INDICATION
     Route: 048
  34. VITAMIN D [Concomitant]
     Active Substance: VITAMIN D NOS
     Indication: PRODUCT USED FOR UNKNOWN INDICATION
     Route: 048
  35. PROCYTOX (CYCLOPHOSPHAMIDE) 2000MG/VIAL [Suspect]
     Active Substance: CYCLOPHOSPHAMIDE
     Route: 042
  36. APREPITANT. [Suspect]
     Active Substance: APREPITANT
     Route: 048
  37. LEVAQUIN [Suspect]
     Active Substance: LEVOFLOXACIN
     Indication: ADVERSE EVENT
     Route: 048
  38. ONDANSETRON [Suspect]
     Active Substance: ONDANSETRON
     Route: 048
  39. PEGFILGRASTIM [Suspect]
     Active Substance: PEGFILGRASTIM
     Route: 058
  40. PEGFILGRASTIM [Suspect]
     Active Substance: PEGFILGRASTIM
     Route: 058
  41. TAMIFLU [Suspect]
     Active Substance: OSELTAMIVIR PHOSPHATE
     Indication: ADVERSE EVENT
     Route: 065
  42. PACLITAXEL. [Concomitant]
     Active Substance: PACLITAXEL
     Indication: BREAST CANCER
     Route: 065
  43. APREPITANT. [Suspect]
     Active Substance: APREPITANT
     Route: 048
  44. APREPITANT. [Suspect]
     Active Substance: APREPITANT
     Route: 048
  45. ONDANSETRON [Suspect]
     Active Substance: ONDANSETRON
     Indication: SUPPORTIVE CARE
     Route: 048
  46. ONDANSETRON [Suspect]
     Active Substance: ONDANSETRON
     Route: 048
  47. ONDANSETRON [Suspect]
     Active Substance: ONDANSETRON
     Route: 048
  48. PEGFILGRASTIM [Suspect]
     Active Substance: PEGFILGRASTIM
     Indication: SUPPORTIVE CARE
     Route: 058
  49. PREDNISONE. [Suspect]
     Active Substance: PREDNISONE
     Indication: ADVERSE EVENT
     Route: 065
  50. ACETAMINOPHEN. [Concomitant]
     Active Substance: ACETAMINOPHEN
     Indication: PRODUCT USED FOR UNKNOWN INDICATION
     Route: 048
  51. DEXAMETHASONE. [Concomitant]
     Active Substance: DEXAMETHASONE
     Route: 048

REACTIONS (8)
  - Respiratory syncytial virus infection [Recovering/Resolving]
  - Nausea [Recovering/Resolving]
  - Atelectasis [Recovering/Resolving]
  - Dyspnoea [Recovering/Resolving]
  - Respiratory failure [Recovering/Resolving]
  - Gastrointestinal disorder [Recovering/Resolving]
  - Asthenia [Recovering/Resolving]
  - Decreased appetite [Recovering/Resolving]
